FAERS Safety Report 8285944-5 (Version None)
Quarter: 2012Q2

REPORT INFORMATION
  Report Type: 
  Country: None (occurrence: None)
  Receive Date: 20120415
  Receipt Date: 20120402
  Transmission Date: 20120825
  Serious: Yes (Hospitalization)
  Sender: FDA-Public Use
  Company Number: BR-ELI_LILLY_AND_COMPANY-BR201202001139

PATIENT
  Sex: Female
  Weight: 45 kg

DRUGS (5)
  1. TRAZODONE HYDROCHLORIDE [Concomitant]
     Dosage: UNK, UNKNOWN
     Route: 065
  2. SEROQUEL [Concomitant]
     Dosage: UNK, UNKNOWN
     Route: 065
  3. ALPRAZOLAM [Concomitant]
     Dosage: UNK, UNKNOWN
     Route: 065
  4. ACETAMINOPHEN W/ CODEINE [Concomitant]
     Dosage: UNK, UNKNOWN
     Route: 065
  5. FORTEO [Suspect]
     Dosage: UNK, UNKNOWN
     Route: 065

REACTIONS (2)
  - CONVULSION [None]
  - CEREBROVASCULAR ACCIDENT [None]
